FAERS Safety Report 7528758 (Version 2)
Quarter: 2025Q3

REPORT INFORMATION
  Report Type: Spontaneous
  Country: EU (occurrence: EU)
  Receive Date: 20100805
  Receipt Date: 20250820
  Transmission Date: 20251021
  Serious: Yes (Hospitalization, Disabling, Other)
  Sender: NOVARTIS
  Company Number: PHHY2010DE48337

PATIENT
  Sex: Female

DRUGS (9)
  1. CYCLOSPORINE [Suspect]
     Active Substance: CYCLOSPORINE
     Indication: Secondary immunodeficiency
     Route: 042
  2. CYCLOSPORINE [Suspect]
     Active Substance: CYCLOSPORINE
     Indication: Liver transplant
     Dosage: 30 MG, QD (DAILY DOSE: 30 MG MILLIGRAM(S) EVERY DAY)
     Route: 042
     Dates: start: 20091203, end: 20091222
  3. CYCLOSPORINE [Suspect]
     Active Substance: CYCLOSPORINE
     Indication: Secondary immunodeficiency
  4. BASILIXIMAB [Suspect]
     Active Substance: BASILIXIMAB
     Indication: Liver transplant
     Route: 065
  5. VORICONAZOLE [Suspect]
     Active Substance: VORICONAZOLE
     Indication: Product used for unknown indication
     Dosage: 180 MG, QD (DAILY DOSE: 180 MG MILLIGRAM(S) EVERY DAY)
     Route: 042
     Dates: start: 20091218, end: 20091225
  6. PREDNISONE [Suspect]
     Active Substance: PREDNISONE
     Indication: Liver transplant
     Route: 065
  7. PREDNISONE [Suspect]
     Active Substance: PREDNISONE
     Route: 065
  8. OSELTAMIVIR [Concomitant]
     Active Substance: OSELTAMIVIR
     Indication: Product used for unknown indication
     Dosage: 60 MG, QD (60 MG MILLIGRAM(S) EVERY DAY)
     Route: 065
  9. MEROPENEM [Concomitant]
     Active Substance: MEROPENEM
     Indication: Product used for unknown indication
     Dosage: 900 MG, QD (900 MG MILLIGRAM(S) EVERY DAY)
     Route: 042
     Dates: start: 20091212, end: 20091226

REACTIONS (17)
  - H1N1 influenza [Recovering/Resolving]
  - Influenza A virus test positive [Recovering/Resolving]
  - Acute respiratory distress syndrome [Recovering/Resolving]
  - Respiratory disorder [Recovering/Resolving]
  - Impaired gastric emptying [Recovering/Resolving]
  - Leukopenia [Recovering/Resolving]
  - Pyrexia [Recovering/Resolving]
  - Lung infiltration [Recovering/Resolving]
  - PaO2/FiO2 ratio decreased [Recovering/Resolving]
  - Renal impairment [Recovered/Resolved]
  - Blood creatinine increased [Recovered/Resolved]
  - Hepatic enzyme increased [Recovered/Resolved]
  - Retrograde portal vein flow [Recovered/Resolved]
  - Retrograde portal vein flow [Unknown]
  - Aspartate aminotransferase increased [Recovered/Resolved]
  - Alanine aminotransferase increased [Recovered/Resolved]
  - Hepatic function abnormal [Unknown]

NARRATIVE: CASE EVENT DATE: 20091220
